FAERS Safety Report 17888951 (Version 1)
Quarter: 2020Q2

REPORT INFORMATION
  Report Type: Spontaneous
  Country: US (occurrence: US)
  Receive Date: 20200611
  Receipt Date: 20200611
  Transmission Date: 20200714
  Serious: Yes (Hospitalization)
  Sender: FDA-Public Use
  Company Number: None

PATIENT
  Age: 71 Year
  Sex: Female
  Weight: 75.75 kg

DRUGS (19)
  1. RESTORIL [Concomitant]
     Active Substance: TEMAZEPAM
  2. ATENOLOL. [Concomitant]
     Active Substance: ATENOLOL
  3. NEFAZADONE [Concomitant]
  4. LISINOPRIL. [Concomitant]
     Active Substance: LISINOPRIL
  5. LASIX [Concomitant]
     Active Substance: FUROSEMIDE
  6. GEMFIBROZIL. [Concomitant]
     Active Substance: GEMFIBROZIL
  7. LORATAINE [Concomitant]
  8. FUROSEMIDE. [Concomitant]
     Active Substance: FUROSEMIDE
  9. ASPIRIN. [Concomitant]
     Active Substance: ASPIRIN
  10. TYLENOL [Concomitant]
     Active Substance: ACETAMINOPHEN
  11. TRAMADOL. [Concomitant]
     Active Substance: TRAMADOL
  12. ELIQUIS [Concomitant]
     Active Substance: APIXABAN
  13. METFORMIN [Concomitant]
     Active Substance: METFORMIN HYDROCHLORIDE
  14. FERROUS SULFATE. [Concomitant]
     Active Substance: FERROUS SULFATE
  15. ACETAMINOPHEN. [Concomitant]
     Active Substance: ACETAMINOPHEN
  16. FASLODEX [Concomitant]
     Active Substance: FULVESTRANT
  17. OMEPRAZOLE. [Concomitant]
     Active Substance: OMEPRAZOLE
  18. LOPID [Concomitant]
     Active Substance: GEMFIBROZIL
  19. IBRANCE [Suspect]
     Active Substance: PALBOCICLIB
     Indication: BREAST CANCER FEMALE
     Dosage: ?          OTHER FREQUENCY:QDX21D,OFF7D;?
     Route: 048

REACTIONS (3)
  - Therapy interrupted [None]
  - Blood glucose decreased [None]
  - White blood cell count decreased [None]
